FAERS Safety Report 4916767-X (Version None)
Quarter: 2006Q1

REPORT INFORMATION
  Report Type: 
  Country: None (occurrence: None)
  Receive Date: 20060220
  Receipt Date: 20051221
  Transmission Date: 20060701
  Serious: Yes (Death, Hospitalization)
  Sender: FDA-Public Use
  Company Number: US-ROCHE-429572

PATIENT
  Age: 58 Year
  Sex: Female

DRUGS (15)
  1. COPEGUS [Suspect]
     Indication: HEPATITIS C
     Route: 048
     Dates: start: 20050918, end: 20051106
  2. PEG-INTRON [Suspect]
     Indication: HEPATITIS C
     Dosage: INJECTABLE POWDER.
     Route: 065
     Dates: start: 20050918, end: 20051106
  3. ANTIBIOTIC [Suspect]
     Route: 065
  4. ASPIRIN [Concomitant]
     Dosage: REPORTED AS ASPIRIN BABY CHEWABLE TABLETS 81MG.
     Route: 048
  5. ATENOLOL [Concomitant]
     Route: 048
  6. AZMACORT [Concomitant]
     Dosage: REPORTED AS AZMACORT AEROSOL SOLUTION 100 MCT/ACT INHALATION.
     Route: 055
  7. CITALOPRAM HYDROBROMIDE [Concomitant]
     Route: 048
  8. COMBIVENT [Concomitant]
     Dosage: REPORTED AS COMBIVENT AEROSOL SOLUTION 103-18MCT/ACT INHALATION.
     Route: 055
  9. DUONEB [Concomitant]
     Dosage: REPORTED AS DUONEB INHALATION SOLUTION 2.5-0.5MG/3ML.
     Route: 055
  10. FUROSEMIDE [Concomitant]
     Route: 048
  11. IBUPROFEN [Concomitant]
     Route: 048
  12. LISINOPRIL [Concomitant]
     Route: 048
  13. NAPROXEN [Concomitant]
     Route: 048
  14. PRILOSEC [Concomitant]
     Route: 048
  15. VERAPAMIL HYDROCHLORIDE [Concomitant]
     Dosage: EXTENDED RELEASE TABLET.
     Route: 048

REACTIONS (8)
  - CLOSTRIDIUM COLITIS [None]
  - DELUSION [None]
  - DIALYSIS [None]
  - METABOLIC ACIDOSIS [None]
  - MULTI-ORGAN FAILURE [None]
  - PNEUMONIA STAPHYLOCOCCAL [None]
  - RENAL FAILURE [None]
  - SEPSIS [None]
